FAERS Safety Report 20577405 (Version 1)
Quarter: 2022Q1

REPORT INFORMATION
  Report Type: Spontaneous
  Country: GB (occurrence: None)
  Receive Date: 20220310
  Receipt Date: 20220310
  Transmission Date: 20220424
  Serious: Yes (Other)
  Sender: FDA-Public Use
  Company Number: 2022A095464

PATIENT
  Age: 1078 Month
  Sex: Female

DRUGS (2)
  1. CALQUENCE [Suspect]
     Active Substance: ACALABRUTINIB
     Route: 048
  2. CHLORAMBUCIL [Concomitant]
     Active Substance: CHLORAMBUCIL
     Route: 065

REACTIONS (1)
  - Blood phosphorus abnormal [Recovered/Resolved]

NARRATIVE: CASE EVENT DATE: 20210401
